FAERS Safety Report 5373046-7 (Version None)
Quarter: 2007Q2

REPORT INFORMATION
  Report Type: 
  Country: None (occurrence: None)
  Receive Date: 20070619
  Receipt Date: 20070416
  Transmission Date: 20071010
  Serious: No
  Sender: FDA-Public Use
  Company Number: 2007US000907

PATIENT
  Age: 41 Year
  Sex: Female

DRUGS (3)
  1. VESICARE [Suspect]
     Indication: BLADDER SPASM
     Dosage: 5 MG, , ORAL
     Route: 048
     Dates: end: 20070421
  2. LAMICTAL [Concomitant]
  3. PHENAZOPYRIDINE HCL TAB [Concomitant]

REACTIONS (3)
  - DRY EYE [None]
  - EYE PAIN [None]
  - VISION BLURRED [None]
